FAERS Safety Report 8281875-5 (Version None)
Quarter: 2012Q2

REPORT INFORMATION
  Report Type: 
  Country: None (occurrence: None)
  Receive Date: 20120413
  Receipt Date: 20120409
  Transmission Date: 20120825
  Serious: Yes (Other)
  Sender: FDA-Public Use
  Company Number: PHHY2012CA029093

PATIENT
  Sex: Female

DRUGS (9)
  1. ATENOLOL [Concomitant]
     Indication: HYPERADRENALISM
  2. EZETIMIBE [Concomitant]
     Dosage: 10 MG, QD
  3. ATIVAN [Concomitant]
     Dosage: UNK UKN, PRN
  4. ESCITALOPRAM [Concomitant]
     Dosage: 10 MG, QD
  5. ASPIRIN [Concomitant]
     Dosage: 81 MG, QD
  6. OMNARIS [Concomitant]
     Dosage: UNK UKN, UNK
  7. ZOLEDRONOC ACID [Suspect]
     Indication: OSTEOPOROSIS
     Dosage: 5 MG, YEARLY
     Route: 042
     Dates: start: 20110419
  8. ATENOLOL [Concomitant]
     Indication: HYPERTENSION
     Dosage: 25 MG, QD
  9. VENTOLIN [Concomitant]
     Indication: NASOPHARYNGITIS
     Dosage: UNK UKN, UNK

REACTIONS (10)
  - HAEMATURIA [None]
  - URINE ALBUMIN/CREATININE RATIO INCREASED [None]
  - BLOOD PRESSURE INCREASED [None]
  - PNEUMONIA [None]
  - DIASTOLIC DYSFUNCTION [None]
  - PERICARDIAL EFFUSION [None]
  - ALBUMIN URINE PRESENT [None]
  - NASOPHARYNGITIS [None]
  - GENERAL PHYSICAL HEALTH DETERIORATION [None]
  - CARDIOMEGALY [None]
